FAERS Safety Report 8086734-9 (Version None)
Quarter: 2012Q1

REPORT INFORMATION
  Report Type: 
  Country: None (occurrence: None)
  Receive Date: 20120128
  Receipt Date: 20110613
  Transmission Date: 20120608
  Serious: No
  Sender: FDA-Public Use
  Company Number: US-ABBOTT-11P-163-0731981-00

PATIENT
  Age: 45 Year
  Sex: Female

DRUGS (3)
  1. IMURAN [Concomitant]
     Indication: PRODUCT USED FOR UNKNOWN INDICATION
  2. HUMIRA [Suspect]
     Indication: CROHN'S DISEASE
     Dosage: LOADING DOSE
     Dates: start: 20110607
  3. NEXIUM [Concomitant]
     Indication: PRODUCT USED FOR UNKNOWN INDICATION
     Dosage: DAILY

REACTIONS (6)
  - NAUSEA [None]
  - FATIGUE [None]
  - GASTRIC DISORDER [None]
  - VOMITING [None]
  - ASTHENIA [None]
  - BODY TEMPERATURE FLUCTUATION [None]
